FAERS Safety Report 8266369-5 (Version None)
Quarter: 2012Q2

REPORT INFORMATION
  Report Type: 
  Country: None (occurrence: None)
  Receive Date: 20120406
  Receipt Date: 20120329
  Transmission Date: 20120825
  Serious: Yes (Other)
  Sender: FDA-Public Use
  Company Number: JP-PFIZER INC-2012072713

PATIENT
  Age: 27 Year
  Sex: Male

DRUGS (1)
  1. VARENICLINE TARTRATE [Suspect]
     Indication: SMOKING CESSATION THERAPY
     Dosage: 2 MG; DAILY
     Route: 048
     Dates: start: 20120101, end: 20120301

REACTIONS (2)
  - TONIC CONVULSION [None]
  - BRAIN NEOPLASM [None]
